FAERS Safety Report 5413441-0 (Version None)
Quarter: 2007Q3

REPORT INFORMATION
  Report Type: 
  Country: None (occurrence: None)
  Receive Date: 20070810
  Receipt Date: 20070810
  Transmission Date: 20080115
  Serious: Yes (Other)
  Sender: FDA-Public Use
  Company Number: None

PATIENT
  Age: 37 Year
  Sex: Female
  Weight: 72.5755 kg

DRUGS (1)
  1. LOESTRIN 24 FE [Suspect]
     Indication: CONTRACEPTION
     Dosage: 1 PILL 1 TIME PER DAY PO
     Route: 048
     Dates: start: 20070714, end: 20070721

REACTIONS (3)
  - HYPOAESTHESIA [None]
  - SWELLING FACE [None]
  - URTICARIA [None]
